FAERS Safety Report 17355613 (Version 1)
Quarter: 2020Q1

REPORT INFORMATION
  Report Type: Report from Study
  Country: IT (occurrence: IT)
  Receive Date: 20200131
  Receipt Date: 20200131
  Transmission Date: 20200409
  Serious: Yes (Hospitalization, Other)
  Sender: FDA-Public Use
  Company Number: IT-MYLANLABS-2020M1010926

PATIENT
  Age: 39 Year
  Sex: Male

DRUGS (1)
  1. OLANZAPINE. [Suspect]
     Active Substance: OLANZAPINE
     Indication: PRODUCT USED FOR UNKNOWN INDICATION
     Dosage: 250 MILLIGRAM, TOTAL
     Route: 048
     Dates: start: 20191010, end: 20191010

REACTIONS (6)
  - Drug abuse [Unknown]
  - Confusional state [Recovering/Resolving]
  - Depressed level of consciousness [Recovering/Resolving]
  - Disorientation [Recovering/Resolving]
  - Negativism [Recovering/Resolving]
  - Sedation [Recovering/Resolving]

NARRATIVE: CASE EVENT DATE: 20191010
